FAERS Safety Report 17716260 (Version 1)
Quarter: 2020Q2

REPORT INFORMATION
  Report Type: Spontaneous
  Country: US (occurrence: US)
  Receive Date: 20200428
  Receipt Date: 20200428
  Transmission Date: 20200714
  Serious: No
  Sender: FDA-Public Use
  Company Number: NVSC2020US107947

PATIENT
  Sex: Male

DRUGS (1)
  1. MEKINIST [Suspect]
     Active Substance: TRAMETINIB DIMETHYL SULFOXIDE
     Indication: PERIPHERAL NERVOUS SYSTEM NEOPLASM
     Dosage: 1 MG, QD
     Route: 048
     Dates: start: 20191227

REACTIONS (1)
  - Adverse drug reaction [Unknown]
